FAERS Safety Report 24686035 (Version 3)
Quarter: 2024Q4

REPORT INFORMATION
  Report Type: Report from Study
  Country: IE (occurrence: IE)
  Receive Date: 20241202
  Receipt Date: 20241224
  Transmission Date: 20250114
  Serious: Yes (Hospitalization)
  Sender: EMD SERONO INC
  Company Number: IE-Merck Healthcare KGaA-2024063066

PATIENT
  Age: 34 Year
  Sex: Female

DRUGS (3)
  1. MAVENCLAD [Suspect]
     Active Substance: CLADRIBINE
     Indication: Relapsing-remitting multiple sclerosis
     Dosage: YEAR ONE WEEK ONE THERAPY: TWO TABLETS ON DAYS 1 AND 2 AND ONE TABLET ON DAYS 3 TO 5
     Dates: start: 20231120
  2. MAVENCLAD [Suspect]
     Active Substance: CLADRIBINE
     Dosage: YEAR ONE WEEK FIVE THERAPY: TWO TABLETS ON DAYS 1 AND 2 AND ONE TABLET ON DAYS 3 TO 5
     Dates: start: 20231218
  3. MAVENCLAD [Suspect]
     Active Substance: CLADRIBINE
     Dosage: YEAR TWO WEEK ONE THERAPY: TWO TABLETS ON DAYS 1 AND 3 AND ONE TABLET ON DAYS 4 TO 5
     Dates: start: 20241118

REACTIONS (5)
  - Vomiting [Unknown]
  - Chest pain [Unknown]
  - Pain in extremity [Unknown]
  - Sensory disturbance [Unknown]
  - Hypotension [Unknown]

NARRATIVE: CASE EVENT DATE: 20241119
